FAERS Safety Report 12272488 (Version 1)
Quarter: 2016Q2

REPORT INFORMATION
  Report Type: Spontaneous
  Country: US (occurrence: US)
  Receive Date: 20160415
  Receipt Date: 20160415
  Transmission Date: 20160815
  Serious: Yes (Other)
  Sender: FDA-Public Use
  Company Number: US-BRISTOL-MYERS SQUIBB COMPANY-BMS-2016-027203

PATIENT
  Age: 48 Year
  Sex: Female

DRUGS (8)
  1. NIVOLUMAB [Suspect]
     Active Substance: NIVOLUMAB
     Indication: MALIGNANT MELANOMA
     Dosage: 1 MG/KG, UNK
     Route: 065
  2. IPILIMUMAB [Suspect]
     Active Substance: IPILIMUMAB
     Indication: MALIGNANT MELANOMA
     Dosage: 3 MG/KG, UNK
     Route: 065
  3. INTERFERON [Concomitant]
     Active Substance: INTERFERON
     Indication: MALIGNANT MELANOMA
     Route: 065
  4. DACARBAZINE. [Concomitant]
     Active Substance: DACARBAZINE
     Indication: MALIGNANT MELANOMA
     Route: 065
  5. CISPLATIN. [Concomitant]
     Active Substance: CISPLATIN
     Indication: MALIGNANT MELANOMA
     Route: 065
  6. VINBLASTINE [Concomitant]
     Active Substance: VINBLASTINE
     Indication: MALIGNANT MELANOMA
     Route: 065
  7. PEMBROLIZUMAB. [Concomitant]
     Active Substance: PEMBROLIZUMAB
     Indication: MALIGNANT MELANOMA
  8. INTERLEUKIN-2 [Concomitant]
     Active Substance: ALDESLEUKIN
     Indication: MALIGNANT MELANOMA
     Route: 065

REACTIONS (3)
  - Lymphocytic hypophysitis [Unknown]
  - Colitis [Unknown]
  - Hepatotoxicity [Recovered/Resolved]
